FAERS Safety Report 17951555 (Version 1)
Quarter: 2020Q2

REPORT INFORMATION
  Report Type: Spontaneous
  Country: US (occurrence: US)
  Receive Date: 20200626
  Receipt Date: 20200626
  Transmission Date: 20200714
  Serious: Yes (Life-Threatening, Hospitalization, Other)
  Sender: FDA-Public Use
  Company Number: US-BRECKENRIDGE PHARMACEUTICAL, INC.-2086718

PATIENT
  Age: 32 Year
  Sex: Male
  Weight: 77.27 kg

DRUGS (2)
  1. OXCARBAZEPINE TABLET, FILM COATED [Suspect]
     Active Substance: OXCARBAZEPINE
     Indication: SEIZURE
     Route: 048
     Dates: start: 20200418, end: 20200507
  2. LEVOTHYROXINE. [Concomitant]
     Active Substance: LEVOTHYROXINE

REACTIONS (9)
  - Weight decreased [None]
  - Hospitalisation [None]
  - Coma [None]
  - Epileptic aura [None]
  - Thrombosis [None]
  - Pulmonary embolism [None]
  - Venous thrombosis limb [None]
  - Generalised tonic-clonic seizure [None]
  - Drug ineffective [None]
